FAERS Safety Report 8606302-7 (Version None)
Quarter: 2012Q3

REPORT INFORMATION
  Report Type: 
  Country: None (occurrence: None)
  Receive Date: 20120820
  Receipt Date: 20120816
  Transmission Date: 20120928
  Serious: Yes (Hospitalization, Other)
  Sender: FDA-Public Use
  Company Number: US-BAYER-2012-073457

PATIENT
  Age: 59 Year
  Sex: Male

DRUGS (1)
  1. ULTRAVIST 150 [Suspect]
     Indication: COMPUTERISED TOMOGRAM
     Dosage: 150 ML, UNK
     Route: 042
     Dates: start: 20120716, end: 20120716

REACTIONS (6)
  - PHARYNGEAL OEDEMA [None]
  - HYPOTENSION [None]
  - GENERALISED OEDEMA [None]
  - ANAPHYLACTIC REACTION [None]
  - FACE OEDEMA [None]
  - LOSS OF CONSCIOUSNESS [None]
